FAERS Safety Report 7458740-6 (Version None)
Quarter: 2011Q2

REPORT INFORMATION
  Report Type: 
  Country: None (occurrence: None)
  Receive Date: 20110504
  Receipt Date: 20110429
  Transmission Date: 20111010
  Serious: Yes (Hospitalization)
  Sender: FDA-Public Use
  Company Number: US-CEPHALON-2011002143

PATIENT
  Sex: Male
  Weight: 93 kg

DRUGS (3)
  1. RITUXIMAB [Suspect]
     Indication: NON-HODGKIN'S LYMPHOMA
     Dates: start: 20110419
  2. TREANDA [Suspect]
     Indication: NON-HODGKIN'S LYMPHOMA
     Route: 041
     Dates: start: 20110419
  3. ZOMETA [Concomitant]
     Indication: HYPERCALCAEMIA

REACTIONS (1)
  - ACUTE RESPIRATORY FAILURE [None]
